FAERS Safety Report 6552314-7 (Version None)
Quarter: 2010Q1

REPORT INFORMATION
  Report Type: 
  Country: None (occurrence: None)
  Receive Date: 20100126
  Receipt Date: 20100114
  Transmission Date: 20100710
  Serious: Yes (Other)
  Sender: FDA-Public Use
  Company Number: DE-GENENTECH-296984

PATIENT
  Age: 55 Year
  Sex: Male

DRUGS (4)
  1. RITUXIMAB [Suspect]
     Indication: LYMPHOMA
     Dosage: UNK
     Route: 042
     Dates: start: 20040101
  2. RITUXIMAB [Suspect]
     Dosage: UNK
     Route: 042
  3. RITUXIMAB [Suspect]
     Dosage: UNK
     Route: 042
     Dates: start: 20100101
  4. BENDAMUSTINE [Concomitant]
     Indication: LYMPHOMA
     Dosage: UNK
     Route: 065
     Dates: start: 20100101

REACTIONS (1)
  - LYMPHADENOPATHY [None]
